FAERS Safety Report 8008612-3 (Version None)
Quarter: 2011Q4

REPORT INFORMATION
  Report Type: 
  Country: None (occurrence: None)
  Receive Date: 20111227
  Receipt Date: 20111212
  Transmission Date: 20120403
  Serious: Yes (Other)
  Sender: FDA-Public Use
  Company Number: IN-WATSON-2011-21800

PATIENT
  Age: 45 Year
  Sex: Male

DRUGS (1)
  1. ZOLPIDEM TARTRATE [Suspect]
     Indication: INSOMNIA
     Dosage: 25 MG AND 20 MG INSTEAD OF 10MG AND 5MG ON DAYS 28 T0 32 (DOSE TAPER)
     Route: 065

REACTIONS (2)
  - DELIRIUM [None]
  - MEDICATION ERROR [None]
